FAERS Safety Report 12569684 (Version 1)
Quarter: 2016Q3

REPORT INFORMATION
  Report Type: Other
  Country: US (occurrence: US)
  Receive Date: 20160719
  Receipt Date: 20160719
  Transmission Date: 20161109
  Serious: Yes (Other)
  Sender: FDA-Public Use
  Company Number: US-ENDO PHARMACEUTICALS INC-2016-004333

PATIENT
  Age: 65 Year
  Sex: Female

DRUGS (1)
  1. ALLOPURINOL TABLETS [Suspect]
     Active Substance: ALLOPURINOL
     Indication: PRODUCT USED FOR UNKNOWN INDICATION
     Route: 065

REACTIONS (2)
  - Glomerulonephritis rapidly progressive [Recovering/Resolving]
  - Antineutrophil cytoplasmic antibody positive [Recovering/Resolving]
